FAERS Safety Report 22030260 (Version 1)
Quarter: 2023Q1

REPORT INFORMATION
  Report Type: Spontaneous
  Country: US (occurrence: US)
  Receive Date: 20230223
  Receipt Date: 20230223
  Transmission Date: 20230418
  Serious: No
  Sender: FDA-Public Use
  Company Number: US-PRIMUS-2022-US-011878

PATIENT
  Age: 75 Year
  Sex: Female
  Weight: 79.38 kg

DRUGS (6)
  1. SERNIVO [Suspect]
     Active Substance: BETAMETHASONE DIPROPIONATE
     Indication: Alopecia
     Dosage: APPLY 1 PUMP TO SCALP ONCE DAILY IN THE EVENING
     Route: 061
     Dates: start: 20220401, end: 20220422
  2. ELIQUIS [Concomitant]
     Active Substance: APIXABAN
  3. GABAPENTIN [Concomitant]
     Active Substance: GABAPENTIN
  4. METOPROLOL [Concomitant]
     Active Substance: METOPROLOL
  5. UNSPECIFIED INGREDIENT [Concomitant]
     Active Substance: UNSPECIFIED INGREDIENT
  6. VENLAFAXINE [Concomitant]
     Active Substance: VENLAFAXINE HYDROCHLORIDE

REACTIONS (5)
  - Alopecia [Not Recovered/Not Resolved]
  - Condition aggravated [Not Recovered/Not Resolved]
  - Intentional product misuse [Recovered/Resolved]
  - Product use in unapproved indication [Recovered/Resolved]
  - Off label use [Recovered/Resolved]

NARRATIVE: CASE EVENT DATE: 20220415
